FAERS Safety Report 25721455 (Version 1)
Quarter: 2025Q3

REPORT INFORMATION
  Report Type: Other
  Country: EU (occurrence: EU)
  Receive Date: 20250825
  Receipt Date: 20250825
  Transmission Date: 20251020
  Serious: Yes (Hospitalization)
  Sender: ZYDUS PHARM
  Company Number: None

PATIENT

DRUGS (3)
  1. IRBESARTAN [Suspect]
     Active Substance: IRBESARTAN
     Indication: Angina unstable
     Route: 048
     Dates: start: 20250507, end: 20250527
  2. TICAGRELOR [Suspect]
     Active Substance: TICAGRELOR
     Indication: Angina unstable
     Route: 048
     Dates: start: 20250507, end: 20250527
  3. ASPIRIN [Suspect]
     Active Substance: ASPIRIN
     Indication: Angina unstable
     Route: 048
     Dates: start: 20250507, end: 20250527

REACTIONS (1)
  - Immune thrombocytopenia [Recovering/Resolving]

NARRATIVE: CASE EVENT DATE: 20250603
